FAERS Safety Report 6466772-X (Version None)
Quarter: 2009Q4

REPORT INFORMATION
  Report Type: 
  Country: None (occurrence: None)
  Receive Date: 20091202
  Receipt Date: 20091122
  Transmission Date: 20100525
  Serious: Yes (Hospitalization)
  Sender: FDA-Public Use
  Company Number: US-ALEXION-A200901006

PATIENT
  Sex: Male

DRUGS (3)
  1. SOLIRIS 300MG [Suspect]
     Indication: PAROXYSMAL NOCTURNAL HAEMOGLOBINURIA
     Dosage: 600 MG, QWK
     Route: 042
     Dates: start: 20071112, end: 20071203
  2. SOLIRIS 300MG [Suspect]
     Dosage: 900 MG, Q2WK
     Route: 042
     Dates: start: 20071212, end: 20090707
  3. SOLIRIS 300MG [Suspect]
     Dosage: 600 MG, UNK
     Route: 042
     Dates: start: 20090916

REACTIONS (5)
  - CHEST DISCOMFORT [None]
  - COUGH [None]
  - EAR CONGESTION [None]
  - HAEMOGLOBIN DECREASED [None]
  - PULMONARY CONGESTION [None]
